FAERS Safety Report 13882092 (Version 1)
Quarter: 2017Q3

REPORT INFORMATION
  Report Type: Spontaneous
  Country: US (occurrence: US)
  Receive Date: 20170818
  Receipt Date: 20170818
  Transmission Date: 20171127
  Serious: No
  Sender: FDA-Public Use
  Company Number: US-BAYER-2017-152880

PATIENT
  Age: 71 Year
  Sex: Female

DRUGS (1)
  1. LORATADINE. [Suspect]
     Active Substance: LORATADINE
     Indication: PRURITUS GENERALISED
     Dosage: UNK
     Dates: start: 201608

REACTIONS (2)
  - Drug ineffective for unapproved indication [None]
  - Product use in unapproved indication [None]

NARRATIVE: CASE EVENT DATE: 201608
